FAERS Safety Report 21758616 (Version 2)
Quarter: 2023Q1

REPORT INFORMATION
  Report Type: Spontaneous
  Country: FI (occurrence: FI)
  Receive Date: 20221221
  Receipt Date: 20230116
  Transmission Date: 20230418
  Serious: Yes (Hospitalization, Other)
  Sender: FDA-Public Use
  Company Number: FI-SANOFI-01382273

PATIENT
  Sex: Male

DRUGS (1)
  1. TOUJEO [Suspect]
     Active Substance: INSULIN GLARGINE
     Dosage: 48 IU, QD
     Dates: start: 2021

REACTIONS (11)
  - Seizure [Unknown]
  - Blindness [Unknown]
  - Asthma [Recovering/Resolving]
  - Hypoacusis [Unknown]
  - Dizziness [Unknown]
  - Dysstasia [Unknown]
  - Malaise [Unknown]
  - Influenza [Unknown]
  - Epistaxis [Unknown]
  - Vision blurred [Recovered/Resolved]
  - Eye operation [Unknown]

NARRATIVE: CASE EVENT DATE: 20220101
